FAERS Safety Report 24990281 (Version 1)
Quarter: 2025Q1

REPORT INFORMATION
  Report Type: Spontaneous
  Country: CN (occurrence: CN)
  Receive Date: 20250220
  Receipt Date: 20250220
  Transmission Date: 20250409
  Serious: Yes (Other)
  Sender: GE HEALTHCARE
  Company Number: CN-GE HEALTHCARE-2025CSU001898

PATIENT
  Age: 53 Year
  Sex: Male

DRUGS (1)
  1. VISIPAQUE [Suspect]
     Active Substance: IODIXANOL
     Indication: Angiocardiogram
     Route: 013
     Dates: start: 20250203, end: 20250203

REACTIONS (5)
  - Skin tightness [Recovered/Resolved]
  - Rash [Recovered/Resolved]
  - Macule [Recovered/Resolved]
  - Pruritus [Recovered/Resolved]
  - Swelling [Recovered/Resolved]

NARRATIVE: CASE EVENT DATE: 20250204
